FAERS Safety Report 24653107 (Version 1)
Quarter: 2024Q4

REPORT INFORMATION
  Report Type: Other
  Country: CA (occurrence: CA)
  Receive Date: 20241122
  Receipt Date: 20241122
  Transmission Date: 20250114
  Serious: Yes (Life-Threatening, Hospitalization)
  Sender: LUPIN
  Company Number: 001107256

PATIENT

DRUGS (7)
  1. PROPRANOLOL [Suspect]
     Active Substance: PROPRANOLOL HYDROCHLORIDE
     Indication: Product used for unknown indication
     Dosage: 1 DOSAGE FORM, QD (1.0 MG/KG)
     Route: 048
  2. PREDNISONE [Suspect]
     Active Substance: PREDNISONE
     Indication: Lymphangioma
     Dosage: 1 DOSAGE FORM, QD (1.0 MG/KG)
     Route: 048
  3. SIROLIMUS [Suspect]
     Active Substance: SIROLIMUS
     Indication: Lymphangioma
     Dosage: UNK
     Route: 048
  4. SIROLIMUS [Suspect]
     Active Substance: SIROLIMUS
     Dosage: 2.0 MILLIGRAM/SQ. METER
     Route: 048
  5. SIROLIMUS [Suspect]
     Active Substance: SIROLIMUS
     Dosage: 2 DOSAGE FORM, QD (0.8 MILLIGRAM PER SQUARE METER)
     Route: 048
  6. VINCRISTINE [Suspect]
     Active Substance: VINCRISTINE
     Indication: Lymphangioma
     Dosage: 0.05 MILLIGRAM/KILOGRAM, Q2WEEKS
     Route: 042
  7. VINCRISTINE [Suspect]
     Active Substance: VINCRISTINE
     Dosage: 1 DOSAGE FORM, QW (0.05 MG/KG)
     Route: 042

REACTIONS (5)
  - Lymphangioma [Unknown]
  - Condition aggravated [Unknown]
  - Product use issue [Unknown]
  - Off label use [Unknown]
  - Product administered to patient of inappropriate age [Unknown]
